FAERS Safety Report 4627191-1 (Version None)
Quarter: 2005Q1

REPORT INFORMATION
  Report Type: 
  Country: None (occurrence: None)
  Receive Date: 20050331
  Receipt Date: 20050324
  Transmission Date: 20050727
  Serious: Yes (Other)
  Sender: FDA-Public Use
  Company Number: 2004106256

PATIENT
  Sex: Female

DRUGS (1)
  1. BEXTRA [Suspect]
     Indication: ARTHRALGIA
     Dosage: 10 MG (10 MG, 1 IN 1 D), ORAL
     Route: 048
     Dates: start: 20041020

REACTIONS (5)
  - BRAIN CANCER METASTATIC [None]
  - BREAST CANCER METASTATIC [None]
  - HEADACHE [None]
  - MOBILITY DECREASED [None]
  - NAUSEA [None]
